FAERS Safety Report 7548989-6 (Version None)
Quarter: 2011Q2

REPORT INFORMATION
  Report Type: 
  Country: None (occurrence: None)
  Receive Date: 20110615
  Receipt Date: 20110601
  Transmission Date: 20111010
  Serious: Yes (Hospitalization, Other)
  Sender: FDA-Public Use
  Company Number: JP-AMGEN-JPNCT2011012910

PATIENT
  Age: 40 Year
  Sex: Female

DRUGS (8)
  1. LANSOPRAZOLE [Concomitant]
     Dosage: 30 MG, PRN
     Route: 048
     Dates: start: 20100419
  2. PIMENOL [Concomitant]
     Dosage: 50 MG, BID
     Route: 048
     Dates: start: 20101203
  3. TAMBOCOR [Concomitant]
     Dosage: 50 MG, BID
     Dates: start: 20070224
  4. ROMIPLOSTIM [Suspect]
     Indication: IDIOPATHIC THROMBOCYTOPENIC PURPURA
     Dosage: 8 A?G/KG, QWK
     Dates: start: 20081216, end: 20110509
  5. ALFAROL [Concomitant]
     Dosage: 0.25 A?G, QD
     Route: 048
     Dates: start: 20080630
  6. CARVEDILOL [Concomitant]
     Dosage: 2.5 MG, BID
     Route: 048
     Dates: start: 20070224
  7. PREDNISOLONE [Concomitant]
     Dosage: 5 MG, QD
     Route: 048
     Dates: start: 20090901
  8. FERROUS CITRATE [Concomitant]
     Dosage: 50 MG, QD
     Route: 048
     Dates: start: 20080630

REACTIONS (2)
  - ARRHYTHMIA [None]
  - SKIN ULCER [None]
